FAERS Safety Report 4954444-X (Version None)
Quarter: 2006Q1

REPORT INFORMATION
  Report Type: 
  Country: None (occurrence: None)
  Receive Date: 20060322
  Receipt Date: 20060307
  Transmission Date: 20060701
  Serious: Yes (Other)
  Sender: FDA-Public Use
  Company Number: 2006-DE-01259GD

PATIENT
  Age: 27 Year
  Sex: Female

DRUGS (5)
  1. HYDROCHLOROTHIAZIDE [Suspect]
     Indication: HYPERTENSION
     Dosage: 50 MG
  2. LABETALOL HCL [Suspect]
     Indication: HYPERTENSION
     Dosage: 800 MG (TWICE DAILY)
  3. AMILORIDE (AMILORIDE) [Suspect]
     Indication: HYPERTENSION
     Dosage: 5 MG
  4. PRAZOSIN GITS [Suspect]
     Indication: HYPERTENSION
     Dosage: 4 MG (TIWICE DAILY)
  5. ENALAPRIL MALEATE [Suspect]
     Indication: HYPERTENSION
     Dosage: 5 MG

REACTIONS (6)
  - BLOOD PRESSURE INADEQUATELY CONTROLLED [None]
  - COMPLICATIONS OF MATERNAL EXPOSURE TO THERAPEUTIC DRUGS [None]
  - DRUG EXPOSURE DURING PREGNANCY [None]
  - FOETAL HEART RATE ABNORMAL [None]
  - INDUCED LABOUR [None]
  - OLIGOHYDRAMNIOS [None]
